FAERS Safety Report 7811428-1 (Version None)
Quarter: 2011Q4

REPORT INFORMATION
  Report Type: 
  Country: None (occurrence: None)
  Receive Date: 20111013
  Receipt Date: 20111011
  Transmission Date: 20120403
  Serious: Yes (Other)
  Sender: FDA-Public Use
  Company Number: JP-PFIZER INC-2011230165

PATIENT
  Age: 81 Year
  Sex: Female

DRUGS (1)
  1. LYRICA [Suspect]
     Indication: LUMBAR SPINAL STENOSIS
     Dosage: 25 MG, 1X/DAY
     Route: 048
     Dates: start: 20110926

REACTIONS (4)
  - ARRHYTHMIA [None]
  - PYREXIA [None]
  - BRADYCARDIA [None]
  - RENAL IMPAIRMENT [None]
